FAERS Safety Report 4505144-1 (Version None)
Quarter: 2004Q4

REPORT INFORMATION
  Report Type: 
  Country: None (occurrence: None)
  Receive Date: 20041116
  Receipt Date: 20040716
  Transmission Date: 20050328
  Serious: Yes (Disabling)
  Sender: FDA-Public Use
  Company Number: 8488

PATIENT
  Age: 74 Year
  Sex: Male

DRUGS (3)
  1. AMIODARONE [Suspect]
     Dates: start: 20000101
  2. TERAZOSIN HCL [Concomitant]
  3. FINASTERIDE [Concomitant]

REACTIONS (5)
  - DYSSTASIA [None]
  - FOOD INTERACTION [None]
  - HYPOTENSION [None]
  - LOSS OF CONSCIOUSNESS [None]
  - VISUAL DISTURBANCE [None]
